FAERS Safety Report 21667073 (Version 1)
Quarter: 2022Q4

REPORT INFORMATION
  Report Type: Spontaneous
  Country: DE (occurrence: DE)
  Receive Date: 20221201
  Receipt Date: 20221201
  Transmission Date: 20230112
  Serious: Yes (Hospitalization, Other)
  Sender: FDA-Public Use
  Company Number: None

PATIENT
  Age: 85 Year
  Sex: Female
  Weight: 55 kg

DRUGS (8)
  1. AMLODIPINE [Interacting]
     Active Substance: AMLODIPINE BESYLATE
     Indication: Product used for unknown indication
     Dosage: 10 MG, 0-0-1-0, TABLET
  2. FENTANYL [Interacting]
     Active Substance: FENTANYL
     Indication: Product used for unknown indication
     Dosage: 25 MCG/H, EVERY 3 DAYS, TRANSDERMAL PATCH
  3. MELPERONE HYDROCHLORIDE [Interacting]
     Active Substance: MELPERONE HYDROCHLORIDE
     Indication: Product used for unknown indication
     Dosage: 25 MG/5ML, 2.5-0-5-5, SYRUP
  4. TORSEMIDE [Interacting]
     Active Substance: TORSEMIDE
     Indication: Product used for unknown indication
     Dosage: 10 MG, 0.5-0-0-0, TABLET
  5. DICLOFENAC [Concomitant]
     Active Substance: DICLOFENAC
     Dosage: 10 MG/G, 1-0-1-0, OINTMENT
  6. METAMIZOLE [Concomitant]
     Active Substance: METAMIZOLE
     Dosage: 500 MG/ML, 30-30-30-30, DROPS
  7. MIRTAZAPINE [Concomitant]
     Active Substance: MIRTAZAPINE
     Dosage: 15 MG, 0-0-0-1, TABLET
  8. PANTOPRAZOLE [Concomitant]
     Active Substance: PANTOPRAZOLE
     Dosage: 20 MG, 0-0-1-0, TABLET

REACTIONS (4)
  - Product monitoring error [Unknown]
  - Musculoskeletal pain [Unknown]
  - Labelled drug-drug interaction medication error [Unknown]
  - Delirium [Unknown]

NARRATIVE: CASE EVENT DATE: 20210610
